FAERS Safety Report 4863753-4 (Version None)
Quarter: 2005Q4

REPORT INFORMATION
  Report Type: 
  Country: None (occurrence: None)
  Receive Date: 20051222
  Receipt Date: 20050727
  Transmission Date: 20060501
  Serious: No
  Sender: FDA-Public Use
  Company Number: US-GLAXOSMITHKLINE-A0567913A

PATIENT
  Age: 79 Year
  Sex: Female

DRUGS (9)
  1. FLONASE [Suspect]
     Dosage: 2SPR PER DAY
     Route: 045
     Dates: start: 20050602, end: 20050726
  2. ATACAND [Concomitant]
  3. DOXAZOSIN [Concomitant]
  4. BUPROPION HCL [Concomitant]
     Route: 048
  5. CITALOPRAM HYDROBROMIDE [Concomitant]
  6. MULTI-VITAMIN [Concomitant]
  7. CALCIUM GLUCONATE [Concomitant]
  8. GLUCOSAMINE CHONDROITIN [Concomitant]
  9. OMEGA 3 FISH OIL [Concomitant]

REACTIONS (3)
  - HEADACHE [None]
  - HERPES ZOSTER [None]
  - SWELLING FACE [None]
